FAERS Safety Report 7315577-6 (Version None)
Quarter: 2011Q1

REPORT INFORMATION
  Report Type: 
  Country: None (occurrence: None)
  Receive Date: 20110225
  Receipt Date: 20110216
  Transmission Date: 20110831
  Serious: Yes (Other)
  Sender: FDA-Public Use
  Company Number: US-CEPHALON-2011000764

PATIENT
  Sex: Male
  Weight: 73 kg

DRUGS (7)
  1. REQUIP [Concomitant]
     Dates: start: 20110215
  2. NUVIGIL [Suspect]
     Indication: SLEEP APNOEA SYNDROME
     Route: 048
     Dates: start: 20110215, end: 20110215
  3. NORCO [Concomitant]
     Indication: PAIN
  4. LOPRESSOR [Concomitant]
     Indication: HYPERTENSION
  5. ZOCOR [Concomitant]
     Indication: BLOOD CHOLESTEROL
  6. AMBIEN [Concomitant]
  7. MINOXIDIL [Concomitant]
     Indication: HYPERTENSION

REACTIONS (5)
  - HYPOVENTILATION [None]
  - RESPIRATORY RATE INCREASED [None]
  - AGITATION [None]
  - MUSCLE SPASMS [None]
  - INSOMNIA [None]
